FAERS Safety Report 20709118 (Version 1)
Quarter: 2022Q2

REPORT INFORMATION
  Report Type: Report from Study
  Country: FR (occurrence: FR)
  Receive Date: 20220414
  Receipt Date: 20220414
  Transmission Date: 20220721
  Serious: Yes (Hospitalization)
  Sender: FDA-Public Use
  Company Number: FR-MYLANLABS-2022M1026760

PATIENT
  Age: 28 Year
  Sex: Female

DRUGS (3)
  1. BUSULFAN [Interacting]
     Active Substance: BUSULFAN
     Indication: Hodgkin^s disease
     Dosage: 4 MILLIGRAM/KILOGRAM
     Route: 065
  2. MELPHALAN [Interacting]
     Active Substance: MELPHALAN
     Indication: Hodgkin^s disease
     Dosage: UNK
     Route: 065
  3. CYTARABINE [Concomitant]
     Active Substance: CYTARABINE
     Indication: Hodgkin^s disease
     Dosage: UNK
     Route: 065

REACTIONS (3)
  - Drug interaction [Recovering/Resolving]
  - Pulmonary arterial hypertension [Recovering/Resolving]
  - Pulmonary fibrosis [Recovering/Resolving]
